FAERS Safety Report 4668393-8 (Version None)
Quarter: 2005Q2

REPORT INFORMATION
  Report Type: 
  Country: None (occurrence: None)
  Receive Date: 20050518
  Receipt Date: 20050428
  Transmission Date: 20051028
  Serious: Yes (Death, Hospitalization)
  Sender: FDA-Public Use
  Company Number: B0365509A

PATIENT
  Age: 39 Year
  Sex: Female

DRUGS (3)
  1. EPIVIR [Suspect]
     Indication: HIV INFECTION
     Dosage: 150 MG / TWICE PER DAY / ORAL
     Route: 048
     Dates: start: 20031003, end: 20050101
  2. TENOFOVIR (FORMULATION UNKNOWN) (TENOFOVIR) [Suspect]
     Indication: HIV INFECTION
     Dosage: 300 MG / PER DAY / ORAL
     Route: 048
     Dates: start: 20030707, end: 20050101
  3. STAVUDINE CAPSULE (STAVUDINE) [Suspect]
     Indication: HIV INFECTION
     Dosage: 40 MG / TWICE PER DAY / ORAL
     Route: 048
     Dates: start: 20031003, end: 20050101

REACTIONS (10)
  - BLOOD CREATININE INCREASED [None]
  - BLOOD GLUCOSE INCREASED [None]
  - BLOOD POTASSIUM DECREASED [None]
  - BLOOD SODIUM DECREASED [None]
  - COMA [None]
  - LACTIC ACIDOSIS [None]
  - MALAISE [None]
  - NAUSEA [None]
  - RENAL IMPAIRMENT [None]
  - VOMITING [None]
